FAERS Safety Report 9799850 (Version 3)
Quarter: 2015Q1

REPORT INFORMATION
  Report Type: Spontaneous
  Country: US (occurrence: US)
  Receive Date: 20140106
  Receipt Date: 20150209
  Transmission Date: 20150721
  Serious: Yes (Other)
  Sender: FDA-Public Use
  Company Number: US-GLAXOSMITHKLINE-A1055186A

PATIENT
  Age: 86 Year
  Sex: Female

DRUGS (8)
  1. ADVAIR HFA [Suspect]
     Active Substance: FLUTICASONE PROPIONATE\SALMETEROL XINAFOATE
     Indication: DYSPNOEA
     Dosage: UNK
  2. ADVAIR HFA [Suspect]
     Active Substance: FLUTICASONE PROPIONATE\SALMETEROL XINAFOATE
     Indication: CHRONIC OBSTRUCTIVE PULMONARY DISEASE
     Dosage: 1 PUFF(S), BID
     Route: 055
     Dates: start: 2008
  3. NEBULIZER [Concomitant]
     Active Substance: UNSPECIFIED INGREDIENT
  4. OXYGEN. [Concomitant]
     Active Substance: OXYGEN
  5. ASPIRIN. [Concomitant]
     Active Substance: ASPIRIN
  6. PROAIR HFA [Concomitant]
     Active Substance: ALBUTEROL SULFATE
  7. BLOOD PRESSURE MEDICATION [Concomitant]
     Active Substance: UNSPECIFIED INGREDIENT
  8. UNSPECIFIED TREATMENT [Concomitant]
     Active Substance: UNSPECIFIED INGREDIENT
     Dosage: ^PURSED BREATHING^

REACTIONS (8)
  - Diplopia [Not Recovered/Not Resolved]
  - Middle ear effusion [Not Recovered/Not Resolved]
  - Blindness unilateral [Not Recovered/Not Resolved]
  - Eye disorder [Not Recovered/Not Resolved]
  - Macular degeneration [Not Recovered/Not Resolved]
  - Visual acuity reduced [Not Recovered/Not Resolved]
  - Drug administration error [Unknown]
  - Cataract operation [Unknown]

NARRATIVE: CASE EVENT DATE: 2008
